FAERS Safety Report 6011489-9 (Version None)
Quarter: 2008Q4

REPORT INFORMATION
  Report Type: 
  Country: None (occurrence: None)
  Receive Date: 20081218
  Receipt Date: 19970214
  Transmission Date: 20090506
  Serious: Yes (Death, Hospitalization)
  Sender: FDA-Public Use
  Company Number: US-ROCHE-74709

PATIENT
  Sex: Female

DRUGS (2)
  1. TICLID [Suspect]
     Route: 048
     Dates: start: 19960826, end: 19960926
  2. TOPROL-XL [Suspect]
     Indication: HYPERTENSION
     Dosage: CORONARY ARTERY DISEASE IS THE SECOND INDICATION; SUSPECT DRUG REPORTED AS TOPROL XL
     Route: 065

REACTIONS (7)
  - APLASTIC ANAEMIA [None]
  - CYTOMEGALOVIRUS INFECTION [None]
  - DEATH [None]
  - HYPERSENSITIVITY [None]
  - MYOCARDIAL INFARCTION [None]
  - PULMONARY OEDEMA [None]
  - RENAL FAILURE [None]
